FAERS Safety Report 9422216 (Version 2)
Quarter: 2013Q3

REPORT INFORMATION
  Report Type: Spontaneous
  Country: US (occurrence: US)
  Receive Date: 20130726
  Receipt Date: 20130808
  Transmission Date: 20140515
  Serious: Yes (Other)
  Sender: FDA-Public Use
  Company Number: US-PFIZER INC-2013214702

PATIENT
  Sex: Male
  Weight: 73.47 kg

DRUGS (5)
  1. VIAGRA [Suspect]
     Indication: ERECTILE DYSFUNCTION
     Dosage: 50 MG, AS NEEDED
  2. VIAGRA [Suspect]
     Dosage: UNK
  3. VIAGRA [Suspect]
     Dosage: 100 MG, AS NEEDED
  4. FLOMAX [Concomitant]
     Indication: POLLAKIURIA
     Dosage: 0.8 MG, DAILY
     Route: 048
  5. ASPIRIN [Concomitant]
     Dosage: UNK

REACTIONS (2)
  - Prostate cancer [Not Recovered/Not Resolved]
  - Drug ineffective [Unknown]
